FAERS Safety Report 22611550 (Version 1)
Quarter: 2023Q2

REPORT INFORMATION
  Report Type: Spontaneous
  Country: FR (occurrence: FR)
  Receive Date: 20230616
  Receipt Date: 20230616
  Transmission Date: 20230721
  Serious: Yes (Hospitalization)
  Sender: FDA-Public Use
  Company Number: None

PATIENT
  Age: 20 Year
  Sex: Male
  Weight: 70 kg

DRUGS (7)
  1. PROPOFOL [Suspect]
     Active Substance: PROPOFOL
     Indication: General anaesthesia
     Dosage: 200 MG
     Route: 042
     Dates: start: 20210109, end: 20210109
  2. SUFENTANIL [Suspect]
     Active Substance: SUFENTANIL
     Indication: General anaesthesia
     Route: 042
     Dates: start: 20210109, end: 20210109
  3. ATRACURIUM [Suspect]
     Active Substance: ATRACURIUM
     Indication: General anaesthesia
     Route: 042
     Dates: start: 20210109, end: 20210109
  4. DEXAMETHASONE [Suspect]
     Active Substance: DEXAMETHASONE
     Indication: Prophylaxis of nausea and vomiting
     Route: 042
     Dates: start: 20210109, end: 20210109
  5. DROPERIDOL [Suspect]
     Active Substance: DROPERIDOL
     Indication: Prophylaxis of nausea and vomiting
     Dosage: 1.25 MG
     Route: 042
     Dates: start: 20210109, end: 20210109
  6. BRICANYL TURBUHALER 500 microgrammes/dose, powder for inhalation [Concomitant]
     Indication: Product used for unknown indication
     Route: 055
  7. IPRATROPIUM MERCK ADULTS 0.5 mg/2 ml, solution for inhalation by nebul [Concomitant]
     Indication: Product used for unknown indication
     Dosage: SOLUTION FOR INHALATION
     Route: 055

REACTIONS (1)
  - Anaphylactic shock [Recovered/Resolved]

NARRATIVE: CASE EVENT DATE: 20210109
